FAERS Safety Report 9249669 (Version 2)
Quarter: 2013Q3

REPORT INFORMATION
  Report Type: Spontaneous
  Country: US (occurrence: US)
  Receive Date: 20130423
  Receipt Date: 20130717
  Transmission Date: 20140515
  Serious: No
  Sender: FDA-Public Use
  Company Number: US-BRISTOL-MYERS SQUIBB COMPANY-17483140

PATIENT
  Age: 75 Year
  Sex: Male

DRUGS (1)
  1. YERVOY [Suspect]
     Indication: MALIGNANT MELANOMA
     Dosage: 200 MG VIAL?920578,EXP:NOV2014(50MG/VIAL)
     Route: 042
     Dates: start: 20121218, end: 20130220

REACTIONS (1)
  - Arthralgia [Unknown]
